FAERS Safety Report 4391559-1 (Version None)
Quarter: 2004Q3

REPORT INFORMATION
  Report Type: 
  Country: None (occurrence: None)
  Receive Date: 20040701
  Receipt Date: 20040618
  Transmission Date: 20050211
  Serious: Yes (Other)
  Sender: FDA-Public Use
  Company Number: 2004041561

PATIENT
  Age: 35 Year
  Sex: Female
  Weight: 60.782 kg

DRUGS (3)
  1. ZOLOFT [Suspect]
     Indication: ANXIETY
     Dosage: ORAL
     Route: 048
     Dates: start: 20020501, end: 20040601
  2. ZOLOFT [Suspect]
     Indication: MAJOR DEPRESSION
     Dosage: ORAL
     Route: 048
     Dates: start: 20020501, end: 20040601
  3. ALL OTHER THERAPEUTIC PRODUCTS (ALL OTHER THERAPEUTIC PRODUCTS) [Concomitant]

REACTIONS (8)
  - AGITATION [None]
  - ANXIETY [None]
  - DEPRESSION [None]
  - HEADACHE [None]
  - MALIGNANT HYPERTENSION [None]
  - NERVOUSNESS [None]
  - OPTIC DISC DISORDER [None]
  - RESTLESSNESS [None]
